FAERS Safety Report 6244443-2 (Version None)
Quarter: 2009Q2

REPORT INFORMATION
  Report Type: 
  Country: None (occurrence: None)
  Receive Date: 20090623
  Receipt Date: 20090612
  Transmission Date: 20091009
  Serious: Yes (Hospitalization, Other)
  Sender: FDA-Public Use
  Company Number: 301928

PATIENT
  Age: 43 Year
  Sex: Female

DRUGS (10)
  1. PAMIDRONATE DISODIUM [Suspect]
  2. HUMIRA [Suspect]
     Indication: PSORIATIC ARTHROPATHY
     Dosage: 40 MG, 1 WEEK, SUBCUTANEOUS (ONCE EVERY 2 WEEKS)
     Route: 058
     Dates: start: 20060315
  3. AMITRIPTYLINE [Concomitant]
  4. DOXAZOSIN MESYLATE [Concomitant]
  5. FELODIPINE [Concomitant]
  6. INDOMETHACIN [Concomitant]
  7. LANSOPRAZOLE [Concomitant]
  8. LOSARTAN POTASSIUM [Concomitant]
  9. METHOTREXATE SODIUM [Concomitant]
  10. TRAMADOL HCL [Concomitant]

REACTIONS (4)
  - CONVULSION [None]
  - PSORIASIS [None]
  - SUICIDAL BEHAVIOUR [None]
  - VAGINAL HAEMORRHAGE [None]
